FAERS Safety Report 13392807 (Version 1)
Quarter: 2017Q1

REPORT INFORMATION
  Report Type: Spontaneous
  Country: US (occurrence: US)
  Receive Date: 20170331
  Receipt Date: 20170331
  Transmission Date: 20170429
  Serious: Yes (Hospitalization, Other)
  Sender: FDA-Public Use
  Company Number: US-BRISTOL-MYERS SQUIBB COMPANY-BMS-2017-011311

PATIENT
  Sex: Female

DRUGS (1)
  1. OPDIVO [Suspect]
     Active Substance: NIVOLUMAB
     Indication: PRODUCT USED FOR UNKNOWN INDICATION
     Dosage: 240 MG, Q2WK
     Route: 042

REACTIONS (6)
  - Cholelithiasis [Unknown]
  - Aplastic anaemia [Unknown]
  - Hyponatraemia [Unknown]
  - Liver function test increased [Unknown]
  - Moraxella infection [Unknown]
  - Transfusion [Unknown]
